FAERS Safety Report 15424017 (Version 2)
Quarter: 2018Q4

REPORT INFORMATION
  Report Type: Spontaneous
  Country: US (occurrence: US)
  Receive Date: 20180925
  Receipt Date: 20181113
  Transmission Date: 20190204
  Serious: No
  Sender: FDA-Public Use
  Company Number: US-GLAXOSMITHKLINE-US2018169616

PATIENT
  Age: 56 Year
  Sex: Male

DRUGS (1)
  1. NICORETTE [Suspect]
     Active Substance: NICOTINE
     Indication: SMOKING CESSATION THERAPY
     Dosage: 3 MG, UNK
     Dates: start: 20180913, end: 20180914

REACTIONS (2)
  - Dizziness [Recovering/Resolving]
  - Nausea [Recovering/Resolving]

NARRATIVE: CASE EVENT DATE: 20180913
